FAERS Safety Report 15525940 (Version 3)
Quarter: 2019Q1

REPORT INFORMATION
  Report Type: Report from Study
  Country: GB (occurrence: GB)
  Receive Date: 20181018
  Receipt Date: 20190311
  Transmission Date: 20190417
  Serious: No
  Sender: FDA-Public Use
  Company Number: GB-JNJFOC-20181022692

PATIENT
  Sex: Female

DRUGS (2)
  1. STELARA [Suspect]
     Active Substance: USTEKINUMAB
     Indication: PSORIASIS
     Route: 058
     Dates: start: 20160331
  2. STELARA [Suspect]
     Active Substance: USTEKINUMAB
     Indication: OSTEOARTHRITIS
     Route: 058
     Dates: start: 20160331

REACTIONS (4)
  - Influenza like illness [Unknown]
  - Gallbladder disorder [Unknown]
  - Viral infection [Unknown]
  - Discomfort [Unknown]
